FAERS Safety Report 4751138-0 (Version None)
Quarter: 2005Q3

REPORT INFORMATION
  Report Type: 
  Country: None (occurrence: None)
  Receive Date: 20050822
  Receipt Date: 20050809
  Transmission Date: 20060218
  Serious: Yes (Other)
  Sender: FDA-Public Use
  Company Number: 2005113115

PATIENT
  Age: 60 Year
  Sex: Male

DRUGS (3)
  1. ZYVOX [Suspect]
     Indication: INFECTION
     Dosage: INTRAVENOUS
     Route: 042
  2. PAXIL [Suspect]
     Indication: PANIC DISORDER
  3. ANTIBIOTICS [Concomitant]

REACTIONS (4)
  - DISEASE RECURRENCE [None]
  - DRUG WITHDRAWAL SYNDROME [None]
  - INFECTION [None]
  - SUICIDAL IDEATION [None]
